FAERS Safety Report 13854195 (Version 1)
Quarter: 2017Q3

REPORT INFORMATION
  Report Type: Spontaneous
  Country: RO (occurrence: RO)
  Receive Date: 20170809
  Receipt Date: 20170809
  Transmission Date: 20171127
  Serious: Yes (Other)
  Sender: FDA-Public Use
  Company Number: RO-IMPAX LABORATORIES, INC-2017-IPXL-02314

PATIENT
  Age: 35 Year
  Sex: Female

DRUGS (3)
  1. MIRTAZAPINE ODT [Suspect]
     Active Substance: MIRTAZAPINE
     Indication: PROGRESSIVE MULTIFOCAL LEUKOENCEPHALOPATHY
     Dosage: 30 MG, 1 /DAY
     Route: 065
  2. MIRTAZAPINE ODT [Suspect]
     Active Substance: MIRTAZAPINE
     Indication: PRODUCT USE IN UNAPPROVED INDICATION
  3. MEFLOQUIN HCL [Suspect]
     Active Substance: MEFLOQUINE HYDROCHLORIDE
     Indication: PROGRESSIVE MULTIFOCAL LEUKOENCEPHALOPATHY
     Dosage: 250 MG, 1 /WEEK
     Route: 065

REACTIONS (2)
  - Immune reconstitution inflammatory syndrome [Unknown]
  - Product use in unapproved indication [Unknown]
